FAERS Safety Report 8506998 (Version 4)
Quarter: 2013Q1

REPORT INFORMATION
  Report Type: Spontaneous
  Country: US (occurrence: US)
  Receive Date: 20120412
  Receipt Date: 20130104
  Transmission Date: 20140127
  Serious: No
  Sender: FDA-Public Use
  Company Number: US-ASTRAZENECA-2011SE42003

PATIENT
  Age: 58 Year
  Sex: Male

DRUGS (5)
  1. TOPROL XL [Suspect]
     Route: 048
  2. PRILOSEC [Suspect]
     Dosage: GENERIC
     Route: 048
  3. PRILOSEC OTC [Suspect]
     Route: 048
  4. LOSARTAN POTASSIUM HYDROCHLORIDE [Concomitant]
  5. NEXIUM [Suspect]
     Route: 048

REACTIONS (6)
  - Barrett^s oesophagus [Unknown]
  - Burn oesophageal [Unknown]
  - Discomfort [Unknown]
  - Gastrooesophageal reflux disease [Unknown]
  - Drug dose omission [Unknown]
  - Drug ineffective [Unknown]
